FAERS Safety Report 7263901-5 (Version None)
Quarter: 2011Q1

REPORT INFORMATION
  Report Type: 
  Country: None (occurrence: None)
  Receive Date: 20110130
  Receipt Date: 20101208
  Transmission Date: 20110831
  Serious: No
  Sender: FDA-Public Use
  Company Number: US-ABBOTT-10P-163-0690335-00

PATIENT
  Age: 46 Year
  Sex: Female

DRUGS (6)
  1. ROWASA ENEMAS [Concomitant]
     Indication: CROHN'S DISEASE
  2. OMPERZOLE [Concomitant]
     Indication: GASTROOESOPHAGEAL REFLUX DISEASE
     Dosage: BEFORE MEALS
  3. VICODIN [Concomitant]
     Indication: CROHN'S DISEASE
  4. VICODIN [Concomitant]
     Indication: PAIN
  5. SYNTHROID [Concomitant]
     Indication: HYPOTHYROIDISM
  6. HUMIRA [Suspect]
     Indication: CROHN'S DISEASE
     Dates: start: 20101129

REACTIONS (1)
  - HEADACHE [None]
